FAERS Safety Report 15194975 (Version 1)
Quarter: 2018Q3

REPORT INFORMATION
  Report Type: Spontaneous
  Country: US (occurrence: US)
  Receive Date: 20180725
  Receipt Date: 20180725
  Transmission Date: 20181010
  Serious: No
  Sender: FDA-Public Use
  Company Number: US-SA-2018SA159139

PATIENT
  Age: 72 Year
  Sex: Male

DRUGS (1)
  1. LOVENOX [Suspect]
     Active Substance: ENOXAPARIN SODIUM
     Indication: ATRIAL FIBRILLATION
     Dosage: 150 MG/ML, Q12H
     Route: 065
     Dates: start: 20180505, end: 20180514

REACTIONS (1)
  - Injection site haematoma [Unknown]

NARRATIVE: CASE EVENT DATE: 20180516
